FAERS Safety Report 16853248 (Version 1)
Quarter: 2019Q3

REPORT INFORMATION
  Report Type: Spontaneous
  Country: US (occurrence: US)
  Receive Date: 20190925
  Receipt Date: 20190925
  Transmission Date: 20191005
  Serious: No
  Sender: FDA-Public Use
  Company Number: US-GLAXOSMITHKLINE-US2019172890

PATIENT
  Age: 89 Year
  Sex: Female

DRUGS (1)
  1. BREO ELLIPTA [Suspect]
     Active Substance: FLUTICASONE FUROATE\VILANTEROL TRIFENATATE
     Indication: PRODUCT USED FOR UNKNOWN INDICATION
     Dosage: 1 PUFF(S), QD
     Route: 055
     Dates: end: 20190917

REACTIONS (11)
  - Aphonia [Not Recovered/Not Resolved]
  - Blood glucose decreased [Unknown]
  - Peripheral swelling [Not Recovered/Not Resolved]
  - Cough [Not Recovered/Not Resolved]
  - Chills [Unknown]
  - Burning sensation [Not Recovered/Not Resolved]
  - Pyrexia [Unknown]
  - Ill-defined disorder [Unknown]
  - Blood glucose increased [Unknown]
  - Dysphonia [Not Recovered/Not Resolved]
  - Pharyngeal swelling [Unknown]

NARRATIVE: CASE EVENT DATE: 2019
